FAERS Safety Report 15986484 (Version 1)
Quarter: 2019Q1

REPORT INFORMATION
  Report Type: Spontaneous
  Country: US (occurrence: US)
  Receive Date: 20190220
  Receipt Date: 20190220
  Transmission Date: 20190418
  Serious: Yes (Other)
  Sender: FDA-Public Use
  Company Number: None

PATIENT
  Age: 18 Month
  Sex: Male
  Weight: 9.45 kg

DRUGS (2)
  1. PRESCRIBED IBUPROFEN FEOM CVS GIVEN ON NOVEMBER 2018 [Suspect]
     Active Substance: IBUPROFEN
     Indication: PAIN
     Dates: start: 20181121, end: 20190213
  2. PRESCRIBED IBUPROFEN FEOM CVS GIVEN ON NOVEMBER 2018 [Suspect]
     Active Substance: IBUPROFEN
     Indication: PYREXIA
     Dates: start: 20181121, end: 20190213

REACTIONS (3)
  - Vomiting [None]
  - Abdominal pain upper [None]
  - Renal pain [None]

NARRATIVE: CASE EVENT DATE: 20190213
